FAERS Safety Report 8021401-9 (Version None)
Quarter: 2012Q1

REPORT INFORMATION
  Report Type: 
  Country: None (occurrence: None)
  Receive Date: 20120104
  Receipt Date: 20111230
  Transmission Date: 20120608
  Serious: Yes (Other)
  Sender: FDA-Public Use
  Company Number: CN-PFIZER INC-2011316564

PATIENT
  Age: 22 Year

DRUGS (2)
  1. DIFLUCAN [Suspect]
  2. CEFOPERAZONE SODIUM [Suspect]

REACTIONS (2)
  - DERMATITIS BULLOUS [None]
  - PANCYTOPENIA [None]
